FAERS Safety Report 6910748-2 (Version None)
Quarter: 2010Q3

REPORT INFORMATION
  Report Type: 
  Country: None (occurrence: None)
  Receive Date: 20100806
  Receipt Date: 20100729
  Transmission Date: 20110219
  Serious: Yes (Other)
  Sender: FDA-Public Use
  Company Number: CA-PURDUE-CAN-2010-0001465

PATIENT
  Sex: Female

DRUGS (12)
  1. BUTRANS TRANSDERMAL PATCH - 5 MCG/HR [Suspect]
     Indication: PAIN
     Dosage: 1 PATCH, WEEKLY
     Route: 062
     Dates: start: 20100719, end: 20100728
  2. BUTRANS TRANSDERMAL PATCH - 5 MCG/HR [Suspect]
     Indication: INFLAMMATION
  3. COUMADIN [Suspect]
     Indication: FACTOR V DEFICIENCY
     Dosage: UNK
     Route: 048
     Dates: start: 20090101, end: 20100728
  4. PREDNISONE [Suspect]
     Indication: INFLAMMATION
     Dosage: 25 MG, DAILY
     Route: 048
     Dates: start: 20100728, end: 20100730
  5. PREDNISONE [Suspect]
     Dosage: 30 MG, DAILY
     Route: 048
     Dates: start: 20100725, end: 20100727
  6. PREDNISONE [Suspect]
     Dosage: 20 MG, BID
     Route: 048
     Dates: start: 20100722, end: 20100724
  7. PREDNISONE [Suspect]
     Dosage: 25 MG, BID
     Route: 048
     Dates: start: 20100719, end: 20100721
  8. FOSAMAX [Concomitant]
     Indication: OSTEOPOROSIS
     Dosage: 70 MG, WEEKLY
     Route: 048
  9. CALCIUM + VITAMIN D [Concomitant]
     Indication: PRODUCT USED FOR UNKNOWN INDICATION
     Dosage: 2 TABLET, DAILY
     Route: 048
  10. REMICADE [Concomitant]
     Indication: ANKYLOSING SPONDYLITIS
     Dosage: UNK
     Route: 042
     Dates: start: 20091201, end: 20100621
  11. ACETAMINOPHEN [Concomitant]
     Indication: PAIN
     Dosage: 650 MG, QID
     Route: 048
     Dates: start: 20100701, end: 20100701
  12. ACETAMINOPHEN [Concomitant]
     Indication: INFLAMMATION

REACTIONS (2)
  - DRUG INTERACTION [None]
  - INTERNATIONAL NORMALISED RATIO INCREASED [None]
